FAERS Safety Report 8098541 (Version 2)
Quarter: 2013Q4

REPORT INFORMATION
  Report Type: Spontaneous
  Country: US (occurrence: None)
  Receive Date: 20100909
  Receipt Date: 20131119
  Transmission Date: 20140711
  Serious: Yes (Other)
  Sender: FDA-Public Use
  Company Number: 20100405

PATIENT
  Age: 60 Year
  Sex: Female

DRUGS (2)
  1. METHYLENE BLUE [Suspect]
     Indication: SCAN
     Dosage: 5 MG/KG IN 500 ML NSS INTRAVENOUS
     Route: 042
  2. FLUOXETINE [Suspect]

REACTIONS (6)
  - Encephalopathy [None]
  - Confusional state [None]
  - Lethargy [None]
  - Aphasia [None]
  - Vertigo [None]
  - Mental status changes [None]
